FAERS Safety Report 18682051 (Version 2)
Quarter: 2021Q1

REPORT INFORMATION
  Report Type: Spontaneous
  Country: JP (occurrence: JP)
  Receive Date: 20201229
  Receipt Date: 20210111
  Transmission Date: 20210419
  Serious: Yes (Hospitalization)
  Sender: FDA-Public Use
  Company Number: JP-JNJFOC-20201251141

PATIENT

DRUGS (2)
  1. FENTANYL CITRATE. [Concomitant]
     Active Substance: FENTANYL CITRATE
     Route: 065
  2. DUROTEP [Suspect]
     Active Substance: FENTANYL
     Indication: PAIN
     Dosage: DOSE UNKNOWN
     Route: 062

REACTIONS (2)
  - Surgery [Unknown]
  - Hospitalisation [Unknown]
